FAERS Safety Report 21264717 (Version 1)
Quarter: 2022Q3

REPORT INFORMATION
  Report Type: Spontaneous
  Country: US (occurrence: US)
  Receive Date: 20220829
  Receipt Date: 20220829
  Transmission Date: 20221027
  Serious: No
  Sender: FDA-Public Use
  Company Number: US-TEVA-2022-US-2065263

PATIENT
  Age: 68 Year
  Sex: Male

DRUGS (2)
  1. DICYCLOMINE HYDROCHLORIDE [Suspect]
     Active Substance: DICYCLOMINE HYDROCHLORIDE
     Indication: Diverticulum
     Dosage: 20 MILLIGRAM DAILY; 20 MG
     Route: 065
  2. DICYCLOMINE HYDROCHLORIDE [Suspect]
     Active Substance: DICYCLOMINE HYDROCHLORIDE
     Indication: Irritable bowel syndrome

REACTIONS (2)
  - Hypoaesthesia oral [Unknown]
  - Inappropriate schedule of product administration [Not Recovered/Not Resolved]
